FAERS Safety Report 9202201 (Version 1)
Quarter: 2013Q1

REPORT INFORMATION
  Report Type: Spontaneous
  Country: DE (occurrence: None)
  Receive Date: 20130328
  Receipt Date: 20130328
  Transmission Date: 20140127
  Serious: Yes (Hospitalization)
  Sender: FDA-Public Use
  Company Number: TPG2012A01499

PATIENT
  Age: 74 Year
  Sex: Female

DRUGS (5)
  1. EDARBI [Suspect]
     Indication: HYPERTENSION
     Route: 048
     Dates: start: 20120202, end: 201210
  2. ACETYLSALICYLIC ACID (ACETYLSALICYLIC  ACID) [Concomitant]
  3. SULTANOL (SALBUTAMOL SULFATE) [Concomitant]
  4. ATROVENT (IPRATROPIUM BROMIDE) [Concomitant]
  5. NITRENDIPIN (NITRENDIPINE) [Concomitant]

REACTIONS (11)
  - Cardiac failure [None]
  - Pulmonary oedema [None]
  - Pleural effusion [None]
  - Pneumonia [None]
  - Respiratory failure [None]
  - Dyspnoea at rest [None]
  - Oedema peripheral [None]
  - Hyperkalaemia [None]
  - Nasopharyngitis [None]
  - Left ventricular hypertrophy [None]
  - C-reactive protein increased [None]
